FAERS Safety Report 6732608-2 (Version None)
Quarter: 2010Q2

REPORT INFORMATION
  Report Type: 
  Country: None (occurrence: None)
  Receive Date: 20100519
  Receipt Date: 20100510
  Transmission Date: 20101027
  Serious: No
  Sender: FDA-Public Use
  Company Number: US-CEPHALON-US024232

PATIENT
  Sex: Male
  Weight: 73 kg

DRUGS (25)
  1. ACTIQ [Suspect]
     Indication: BACK PAIN
     Route: 002
     Dates: start: 20030101, end: 20060101
  2. ACTIQ [Suspect]
     Dosage: 2 LOZENGES EVERY 2 HOURS AS NEEDED
     Route: 002
     Dates: end: 20080301
  3. FENTORA [Suspect]
     Indication: BACK PAIN
     Route: 002
     Dates: start: 20061011
  4. OPANA [Concomitant]
     Indication: PAIN
     Dosage: TWO TABLETS EVERY 8 HOURS
     Route: 048
     Dates: start: 20080101
  5. OPANA [Concomitant]
     Dosage: SEVEN 40 MG TABLETS TWICE DAILY
     Route: 048
  6. OPANA ER [Concomitant]
     Indication: PAIN
     Dosage: 4 TABLETS DAILY
     Route: 048
     Dates: start: 20080101
  7. VALIUM [Concomitant]
     Indication: MUSCLE SPASMS
     Route: 048
     Dates: start: 20080101
  8. VALIUM [Concomitant]
     Indication: STRESS
     Route: 048
  9. SYNTHROID [Concomitant]
     Indication: THYROID DISORDER
     Route: 048
  10. CYMBALTA [Concomitant]
     Route: 048
  11. FLEXERIL [Concomitant]
     Indication: MUSCLE SPASMS
     Route: 048
  12. DHEA SR [Concomitant]
     Indication: SUPPLEMENTATION THERAPY
     Route: 048
     Dates: start: 20080101
  13. AMBIEN CR [Concomitant]
     Indication: SLEEP DISORDER
     Route: 048
  14. DEXEDRINE [Concomitant]
     Indication: SOMNOLENCE
     Route: 048
     Dates: start: 20080101
  15. MORPHINE PUMP [Concomitant]
     Indication: PAIN
     Route: 065
     Dates: start: 20040101, end: 20070101
  16. DILAUDID [Concomitant]
     Indication: PAIN
     Dosage: FOUR 4 MG TABLETS EVERY 2 HOURS AS NEEDED
     Route: 048
  17. LIMBREL [Concomitant]
     Route: 048
  18. AVINZA [Concomitant]
     Indication: BACK PAIN
  19. WELLBUTRIN [Concomitant]
  20. ALPRAZOLAM [Concomitant]
  21. VICODIN [Concomitant]
  22. BACLOFEN [Concomitant]
  23. OXYCONTIN [Concomitant]
  24. DEMEROL [Concomitant]
  25. OXYCODONE HCL AND ACETAMINOPHEN [Concomitant]

REACTIONS (3)
  - DENTAL CARIES [None]
  - DRUG INEFFECTIVE FOR UNAPPROVED INDICATION [None]
  - DRUG PRESCRIBING ERROR [None]
